FAERS Safety Report 6473458-4 (Version None)
Quarter: 2009Q4

REPORT INFORMATION
  Report Type: 
  Country: None (occurrence: None)
  Receive Date: 20091204
  Receipt Date: 20090501
  Transmission Date: 20100525
  Serious: Yes (Hospitalization, Other)
  Sender: FDA-Public Use
  Company Number: US-ELI_LILLY_AND_COMPANY-US200812005704

PATIENT
  Sex: Male

DRUGS (1)
  1. FORTEO [Suspect]

REACTIONS (6)
  - ASPIRATION [None]
  - ILL-DEFINED DISORDER [None]
  - IMMUNOSUPPRESSION [None]
  - LOSS OF CONSCIOUSNESS [None]
  - OSTEOMYELITIS [None]
  - PNEUMONIA [None]
